FAERS Safety Report 6511924-3 (Version None)
Quarter: 2009Q4

REPORT INFORMATION
  Report Type: 
  Country: None (occurrence: None)
  Receive Date: 20091222
  Receipt Date: 20090626
  Transmission Date: 20100525
  Serious: No
  Sender: FDA-Public Use
  Company Number: US-ASTRAZENECA-2009UW17975

PATIENT
  Age: 76 Year
  Sex: Female
  Weight: 67.1 kg

DRUGS (3)
  1. CRESTOR [Suspect]
     Route: 048
  2. ATENOLOL [Concomitant]
     Indication: HYPERTENSION
     Route: 048
  3. LASIX [Concomitant]
     Indication: HYPERTENSION

REACTIONS (2)
  - CHILLS [None]
  - PRURITUS [None]
